FAERS Safety Report 18417717 (Version 1)
Quarter: 2020Q4

REPORT INFORMATION
  Report Type: Spontaneous
  Country: HR (occurrence: HR)
  Receive Date: 20201022
  Receipt Date: 20201022
  Transmission Date: 20210114
  Serious: Yes (Life-Threatening)
  Sender: FDA-Public Use
  Company Number: HR-TEIKOKU PHARMA USA-TPU2020-00825

PATIENT
  Age: 85 Year
  Sex: Female
  Weight: 64 kg

DRUGS (6)
  1. PIRAMIL [Concomitant]
     Active Substance: RAMIPRIL
     Dates: start: 20120815
  2. LASIX [Concomitant]
     Active Substance: FUROSEMIDE
  3. BYOL COR [Concomitant]
     Active Substance: BISOPROLOL FUMARATE
     Dates: start: 20160816
  4. IBUPROFEN. [Concomitant]
     Active Substance: IBUPROFEN
  5. VERSATIS [Suspect]
     Active Substance: LIDOCAINE
     Indication: POST HERPETIC NEURALGIA
     Route: 062
     Dates: start: 20200730, end: 20200808
  6. ALDACTONE [Concomitant]
     Active Substance: SPIRONOLACTONE
     Dates: start: 20110719

REACTIONS (1)
  - Bundle branch block right [Recovered/Resolved with Sequelae]

NARRATIVE: CASE EVENT DATE: 20200809
